FAERS Safety Report 8455508-9 (Version None)
Quarter: 2012Q2

REPORT INFORMATION
  Report Type: 
  Country: None (occurrence: None)
  Receive Date: 20120621
  Receipt Date: 20120611
  Transmission Date: 20120825
  Serious: Yes (Hospitalization)
  Sender: FDA-Public Use
  Company Number: US-JNJFOC-20120413113

PATIENT
  Sex: Female
  Weight: 92.99 kg

DRUGS (12)
  1. SIMPONI [Suspect]
     Indication: RHEUMATOID ARTHRITIS
     Route: 058
     Dates: start: 20111101
  2. SIMPONI [Suspect]
     Route: 058
     Dates: start: 20111001
  3. METHOTREXATE [Concomitant]
     Indication: RHEUMATOID ARTHRITIS
     Route: 065
     Dates: start: 20101201, end: 20111201
  4. CINNAMON [Concomitant]
     Route: 065
  5. ALL OTHER THERAPEUTICS [Concomitant]
     Route: 065
  6. SIMPONI [Suspect]
     Route: 058
     Dates: start: 20111213
  7. SIMPONI [Suspect]
     Route: 058
     Dates: start: 20110914
  8. FISH OIL [Concomitant]
     Route: 065
  9. PREDNISONE TAB [Concomitant]
     Route: 065
  10. FOLIC ACID [Concomitant]
     Route: 065
  11. ASCORBIC ACID [Concomitant]
     Route: 065
  12. IBUPROFEN [Concomitant]
     Route: 065

REACTIONS (2)
  - PNEUMONIA [None]
  - NASOPHARYNGITIS [None]
